FAERS Safety Report 8609261-6 (Version None)
Quarter: 2012Q3

REPORT INFORMATION
  Report Type: 
  Country: None (occurrence: None)
  Receive Date: 20120821
  Receipt Date: 20120814
  Transmission Date: 20120928
  Serious: Yes (Other)
  Sender: FDA-Public Use
  Company Number: US-TEVA-322327USA

PATIENT
  Sex: Female
  Weight: 73.094 kg

DRUGS (1)
  1. CLARAVIS [Suspect]
     Dosage: 80 MILLIGRAM DAILY;
     Route: 048
     Dates: start: 20110512, end: 20110101

REACTIONS (1)
  - UNINTENDED PREGNANCY [None]
